FAERS Safety Report 15583385 (Version 1)
Quarter: 2018Q4

REPORT INFORMATION
  Report Type: Spontaneous
  Country: GB (occurrence: GB)
  Receive Date: 20181103
  Receipt Date: 20181103
  Transmission Date: 20190205
  Serious: Yes (Life-Threatening)
  Sender: FDA-Public Use
  Company Number: GB-TEVA-2018-GB-971128

PATIENT
  Age: 62 Year
  Sex: Male

DRUGS (4)
  1. CLOPIXOL ACUPHASE [Suspect]
     Active Substance: ZUCLOPENTHIXOL ACETATE
     Dosage: 50MG/1ML
     Route: 030
     Dates: end: 20180926
  2. OLANZAPINE. [Suspect]
     Active Substance: OLANZAPINE
     Route: 048
     Dates: end: 20180926
  3. LORAZEPAM. [Concomitant]
     Active Substance: LORAZEPAM
     Dosage: 1.5 MILLIGRAM DAILY;
     Route: 030
  4. HALOPERIDOL. [Suspect]
     Active Substance: HALOPERIDOL
     Dosage: 9 MILLIGRAM DAILY;
     Route: 030
     Dates: end: 20180926

REACTIONS (10)
  - Neuroleptic malignant syndrome [Not Recovered/Not Resolved]
  - Confusional state [Unknown]
  - Blood creatine phosphokinase increased [Unknown]
  - Pyrexia [Unknown]
  - Hyperhidrosis [Unknown]
  - Muscle rigidity [Unknown]
  - Agitation [Unknown]
  - Hallucination, auditory [Unknown]
  - Coma scale abnormal [Unknown]
  - Mental status changes [Unknown]

NARRATIVE: CASE EVENT DATE: 20180926
